FAERS Safety Report 4704608-5 (Version None)
Quarter: 2005Q2

REPORT INFORMATION
  Report Type: 
  Country: None (occurrence: None)
  Receive Date: 20050629
  Receipt Date: 20050619
  Transmission Date: 20051028
  Serious: Yes (Death)
  Sender: FDA-Public Use
  Company Number: 2005P1000040

PATIENT
  Age: 27 Year
  Sex: Male

DRUGS (5)
  1. BUSULFAN (BUSULFAN) [Suspect]
     Indication: NON-HODGKIN'S LYMPHOMA
     Dosage: 108.8 MG; QD; IV
     Route: 042
     Dates: start: 20030831, end: 20030903
  2. CYCLOPHOSPHAMIDE [Concomitant]
  3. PHENYTOIN [Concomitant]
  4. ACYCLOVIR [Concomitant]
  5. TARGOCID [Concomitant]

REACTIONS (3)
  - BONE MARROW TRANSPLANT [None]
  - MULTI-ORGAN FAILURE [None]
  - SEPSIS [None]
